FAERS Safety Report 5553793-4 (Version None)
Quarter: 2007Q4

REPORT INFORMATION
  Report Type: 
  Country: None (occurrence: None)
  Receive Date: 20071212
  Receipt Date: 20071212
  Transmission Date: 20080405
  Serious: Yes (Congenital Anomaly)
  Sender: FDA-Public Use
  Company Number: None

PATIENT
  Age: 35 Year
  Sex: Female
  Weight: 67.1324 kg

DRUGS (1)
  1. LEXAPRO [Suspect]
     Indication: DEPRESSION
     Dosage: 10 MG 1TAB DAILY BY MOUTH
     Route: 048
     Dates: start: 20040101, end: 20070101

REACTIONS (6)
  - DIZZINESS [None]
  - DRUG EXPOSURE DURING PREGNANCY [None]
  - LOSS OF CONSCIOUSNESS [None]
  - MITRAL VALVE DISEASE [None]
  - PREGNANCY [None]
  - SYNCOPE [None]
